FAERS Safety Report 4682606-8 (Version None)
Quarter: 2005Q2

REPORT INFORMATION
  Report Type: 
  Country: None (occurrence: None)
  Receive Date: 20050606
  Receipt Date: 20050425
  Transmission Date: 20051028
  Serious: Yes (Disabling)
  Sender: FDA-Public Use
  Company Number: US-BRISTOL-MYERS SQUIBB COMPANY-12945069

PATIENT
  Age: 11 Year
  Sex: Female
  Weight: 52 kg

DRUGS (5)
  1. ABILIFY [Suspect]
     Indication: MOOD ALTERED
     Route: 048
     Dates: start: 20030918
  2. ABILIFY [Suspect]
     Indication: IRRITABILITY
     Route: 048
     Dates: start: 20030918
  3. ABILIFY [Suspect]
     Indication: AGGRESSION
     Route: 048
     Dates: start: 20030918
  4. TRILEPTAL [Concomitant]
  5. STRATTERA [Concomitant]

REACTIONS (6)
  - AFFECT LABILITY [None]
  - CRYING [None]
  - DYSKINESIA [None]
  - HYPERACUSIS [None]
  - PHOTOPHOBIA [None]
  - SOCIAL AVOIDANT BEHAVIOUR [None]
